FAERS Safety Report 8988369 (Version 1)
Quarter: 2012Q4

REPORT INFORMATION
  Report Type: Spontaneous
  Country: US (occurrence: None)
  Receive Date: 20121220
  Receipt Date: 20121220
  Transmission Date: 20130627
  Serious: Yes (Hospitalization)
  Sender: FDA-Public Use
  Company Number: None

PATIENT
  Age: 24 Year
  Sex: Female
  Weight: 97.52 kg

DRUGS (1)
  1. ADIPEX [Suspect]

REACTIONS (11)
  - Convulsion [None]
  - Palpitations [None]
  - Hypoaesthesia [None]
  - Amnesia [None]
  - Movement disorder [None]
  - Anxiety [None]
  - Asthenia [None]
  - Deafness [None]
  - Fatigue [None]
  - Asthenia [None]
  - Insomnia [None]
